FAERS Safety Report 15249897 (Version 1)
Quarter: 2018Q3

REPORT INFORMATION
  Report Type: Spontaneous
  Country: US (occurrence: US)
  Receive Date: 20180716
  Receipt Date: 20180716
  Transmission Date: 20181010
  Serious: No
  Sender: FDA-Public Use
  Company Number: None

PATIENT
  Age: 36 Year
  Sex: Male

DRUGS (1)
  1. AMPYRA [Suspect]
     Active Substance: DALFAMPRIDINE
     Indication: MULTIPLE SCLEROSIS
     Route: 048
     Dates: start: 20170920

REACTIONS (9)
  - Platelet count increased [None]
  - Laboratory test abnormal [None]
  - Mean cell volume abnormal [None]
  - Low density lipoprotein increased [None]
  - Blood chloride decreased [None]
  - Granulocytes abnormal [None]
  - High density lipoprotein decreased [None]
  - Mean cell haemoglobin decreased [None]
  - Blood cholesterol increased [None]

NARRATIVE: CASE EVENT DATE: 20180709
